FAERS Safety Report 4443760-6 (Version None)
Quarter: 2004Q3

REPORT INFORMATION
  Report Type: 
  Country: None (occurrence: None)
  Receive Date: 20040802
  Receipt Date: 20040526
  Transmission Date: 20050211
  Serious: No
  Sender: FDA-Public Use
  Company Number: 2004-117253-NL

PATIENT
  Age: 36 Year
  Sex: Female
  Weight: 77.3 kg

DRUGS (6)
  1. NUVARING [Suspect]
     Indication: CONTRACEPTION
     Dosage: DF DAILY VAGINAL
     Route: 067
     Dates: start: 20040512
  2. ALBUTEROL [Concomitant]
  3. RHINOCORT [Concomitant]
  4. MULTI-VITAMINS [Concomitant]
  5. IRON [Concomitant]
  6. OMEGA-3 FATTY ACID [Concomitant]

REACTIONS (3)
  - BACK PAIN [None]
  - HEADACHE [None]
  - METRORRHAGIA [None]
